FAERS Safety Report 5503431-1 (Version None)
Quarter: 2007Q4

REPORT INFORMATION
  Report Type: 
  Country: None (occurrence: None)
  Receive Date: 20071031
  Receipt Date: 20071022
  Transmission Date: 20080405
  Serious: Yes (Other)
  Sender: FDA-Public Use
  Company Number: US-ELI_LILLY_AND_COMPANY-US200710005685

PATIENT
  Age: 45 Year
  Sex: Male

DRUGS (2)
  1. CYMBALTA [Suspect]
     Dosage: 1 MG, UNK
  2. CYMBALTA [Suspect]
     Dosage: 120 MG, UNK

REACTIONS (1)
  - LIVER FUNCTION TEST ABNORMAL [None]
